FAERS Safety Report 5372106-4 (Version None)
Quarter: 2007Q2

REPORT INFORMATION
  Report Type: 
  Country: None (occurrence: None)
  Receive Date: 20070615
  Receipt Date: 20070521
  Transmission Date: 20071010
  Serious: No
  Sender: FDA-Public Use
  Company Number: SP01246

PATIENT
  Age: 62 Year
  Sex: Female

DRUGS (1)
  1. XIFAXAN [Suspect]
     Indication: HEPATIC ENCEPHALOPATHY
     Dosage: 400 MG (200 MG, 2 IN 1 D), ORAL
     Route: 048
     Dates: start: 20061101

REACTIONS (1)
  - TONGUE DISCOLOURATION [None]
